FAERS Safety Report 4845427-9 (Version None)
Quarter: 2005Q4

REPORT INFORMATION
  Report Type: 
  Country: None (occurrence: None)
  Receive Date: 20051125
  Receipt Date: 20051115
  Transmission Date: 20060501
  Serious: Yes (Disabling)
  Sender: FDA-Public Use
  Company Number: HQWYE149521OCT05

PATIENT
  Age: 66 Year
  Sex: Male

DRUGS (6)
  1. EFFEXOR XR [Suspect]
     Indication: DEPRESSION
     Dosage: 150 MG 1X PER 1 DAY
     Route: 048
     Dates: start: 20051001, end: 20050101
  2. EFFEXOR XR [Suspect]
     Indication: DEPRESSION
     Dosage: 150 MG 1X PER 1 DAY
     Route: 048
     Dates: start: 20051004, end: 20051001
  3. COUMADIN [Suspect]
     Dosage: ^5 MG DEPENDING ON INR^
     Route: 048
     Dates: start: 19950101
  4. LANOXIN [Concomitant]
  5. THIAMINE (THIAMINE) [Concomitant]
  6. NOVOSEMIDE (FUROSEMIDE) [Concomitant]

REACTIONS (7)
  - CONDITION AGGRAVATED [None]
  - CONFUSIONAL STATE [None]
  - DRUG INTERACTION [None]
  - INCORRECT DOSE ADMINISTERED [None]
  - INTERNATIONAL NORMALISED RATIO DECREASED [None]
  - MEDICATION ERROR [None]
  - TREATMENT NONCOMPLIANCE [None]
